FAERS Safety Report 7345271-7 (Version None)
Quarter: 2011Q1

REPORT INFORMATION
  Report Type: 
  Country: None (occurrence: None)
  Receive Date: 20110310
  Receipt Date: 20110302
  Transmission Date: 20110831
  Serious: Yes (Death, Life-Threatening, Hospitalization, Other)
  Sender: FDA-Public Use
  Company Number: DE-ELI_LILLY_AND_COMPANY-DE201102001420

PATIENT
  Age: 33 Year
  Sex: Female

DRUGS (6)
  1. ZYPREXA [Suspect]
     Dosage: 7.5 MG, DAILY (1/D)
     Dates: start: 20100515
  2. ZYPREXA [Suspect]
     Dosage: 7.5 MG, 2/D
  3. ZYPREXA [Suspect]
     Indication: SCHIZOPHRENIA
     Dosage: 15 MG, DAILY (1/D)
     Dates: start: 20100508, end: 20100514
  4. CANNABIS [Concomitant]
  5. ZOLPIDEM TARTRATE [Concomitant]
     Indication: SLEEP DISORDER
  6. ZOPLICONE [Concomitant]
     Dosage: 7.5 MG, UNK

REACTIONS (31)
  - DEATH [None]
  - FEELING ABNORMAL [None]
  - MOVEMENT DISORDER [None]
  - DILATATION VENTRICULAR [None]
  - BLOOD CREATININE INCREASED [None]
  - BLOOD ALKALINE PHOSPHATASE INCREASED [None]
  - BRAIN OEDEMA [None]
  - ACTIVATED PARTIAL THROMBOPLASTIN TIME PROLONGED [None]
  - BRAIN DEATH [None]
  - LOSS OF CONSCIOUSNESS [None]
  - TROPONIN INCREASED [None]
  - BLOOD GLUCOSE INCREASED [None]
  - CARDIAC ARREST [None]
  - ASPARTATE AMINOTRANSFERASE INCREASED [None]
  - WHITE BLOOD CELL COUNT INCREASED [None]
  - BINGE EATING [None]
  - INSOMNIA [None]
  - HIGH DENSITY LIPOPROTEIN DECREASED [None]
  - VENTRICULAR FIBRILLATION [None]
  - EJECTION FRACTION DECREASED [None]
  - WEIGHT INCREASED [None]
  - ABNORMAL BEHAVIOUR [None]
  - BLOOD POTASSIUM DECREASED [None]
  - BLOOD CREATINE PHOSPHOKINASE INCREASED [None]
  - MYOCARDIAL INFARCTION [None]
  - ALANINE AMINOTRANSFERASE INCREASED [None]
  - INTENTIONAL DRUG MISUSE [None]
  - INTERNATIONAL NORMALISED RATIO INCREASED [None]
  - C-REACTIVE PROTEIN INCREASED [None]
  - FATIGUE [None]
  - GAMMA-GLUTAMYLTRANSFERASE INCREASED [None]
